FAERS Safety Report 24671481 (Version 1)
Quarter: 2024Q4

REPORT INFORMATION
  Report Type: Report from Study
  Country: US (occurrence: US)
  Receive Date: 20241127
  Receipt Date: 20241127
  Transmission Date: 20250115
  Serious: Yes (Hospitalization, Other)
  Sender: BAUSCH AND LOMB
  Company Number: US-BAUSCH-BL-2024-017201

PATIENT
  Age: 75 Year
  Sex: Female

DRUGS (1)
  1. XIFAXAN [Suspect]
     Active Substance: RIFAXIMIN
     Indication: Hepatic encephalopathy
     Route: 048

REACTIONS (10)
  - Portal shunt procedure [Unknown]
  - Transcatheter aortic valve implantation [Unknown]
  - Cardiac failure [Unknown]
  - Diabetes mellitus [Unknown]
  - Haematemesis [Unknown]
  - Hepatic cirrhosis [Unknown]
  - Chronic kidney disease [Unknown]
  - Lymphoedema [Unknown]
  - Insurance issue [Unknown]
  - Inability to afford medication [Unknown]

NARRATIVE: CASE EVENT DATE: 20231001
